FAERS Safety Report 6793204-4 (Version None)
Quarter: 2010Q2

REPORT INFORMATION
  Report Type: 
  Country: None (occurrence: None)
  Receive Date: 20100624
  Receipt Date: 20100323
  Transmission Date: 20101027
  Serious: Yes (Other)
  Sender: FDA-Public Use
  Company Number: US-MYLANLABS-2009S1013918

PATIENT
  Age: 28 Year
  Sex: Male

DRUGS (9)
  1. CLOZAPINE [Suspect]
     Indication: SCHIZOPHRENIA
     Dosage: AT 2PM
     Route: 048
     Dates: start: 20070101, end: 20100209
  2. CLOZAPINE [Suspect]
     Dosage: AT 2PM
     Route: 048
     Dates: start: 20070101, end: 20100209
  3. ASPIRIN [Concomitant]
     Route: 048
  4. ACTOPLUS MET [Concomitant]
     Route: 048
  5. COGENTIN [Concomitant]
     Route: 048
  6. BYSTOLIC [Concomitant]
     Route: 048
  7. DEPAKOTE ER [Concomitant]
     Route: 048
  8. HALOPERIDOL [Concomitant]
     Route: 048
  9. SIMCOR [Concomitant]
     Route: 048

REACTIONS (2)
  - GRANULOCYTOPENIA [None]
  - LEUKOPENIA [None]
